FAERS Safety Report 4296536-7 (Version None)
Quarter: 2004Q1

REPORT INFORMATION
  Report Type: 
  Country: None (occurrence: None)
  Receive Date: 20040126
  Receipt Date: 20030827
  Transmission Date: 20041129
  Serious: No
  Sender: FDA-Public Use
  Company Number: USA030844704

PATIENT
  Age: 5 Year
  Sex: Female
  Weight: 18 kg

DRUGS (2)
  1. STRATTERA [Suspect]
     Dosage: 25 MG/DAY
     Dates: start: 20030819
  2. RITALIN [Concomitant]

REACTIONS (2)
  - ABDOMINAL PAIN UPPER [None]
  - PSYCHOMOTOR HYPERACTIVITY [None]
